FAERS Safety Report 11251617 (Version 1)
Quarter: 2015Q3

REPORT INFORMATION
  Report Type: Spontaneous
  Country: US (occurrence: US)
  Receive Date: 20150708
  Receipt Date: 20150708
  Transmission Date: 20151125
  Serious: No
  Sender: FDA-Public Use
  Company Number: US-ELI_LILLY_AND_COMPANY-US201202008297

PATIENT
  Sex: Female

DRUGS (3)
  1. ALIMTA [Suspect]
     Active Substance: PEMETREXED DISODIUM
     Dosage: MAINTENANCE
  2. AVASTIN [Concomitant]
     Active Substance: BEVACIZUMAB
  3. ALIMTA [Suspect]
     Active Substance: PEMETREXED DISODIUM
     Indication: LUNG NEOPLASM MALIGNANT
     Dosage: UNK

REACTIONS (6)
  - Feeling hot [Unknown]
  - Arthritis [Unknown]
  - Peripheral coldness [Unknown]
  - Peripheral swelling [Unknown]
  - Hypersomnia [Unknown]
  - Pain in extremity [Unknown]
